FAERS Safety Report 9354808 (Version 1)
Quarter: 2013Q2

REPORT INFORMATION
  Report Type: Spontaneous
  Country: US (occurrence: None)
  Receive Date: 20130618
  Receipt Date: 20130618
  Transmission Date: 20140414
  Serious: Yes (Hospitalization)
  Sender: FDA-Public Use
  Company Number: None

PATIENT
  Age: 4 Year
  Sex: Male
  Weight: 17.3 kg

DRUGS (1)
  1. KOATE [Suspect]
     Indication: FACTOR VIII DEFICIENCY
     Dosage: 1840 UNITS, DAILY, 042
     Dates: start: 201208

REACTIONS (3)
  - Hypersensitivity [None]
  - Anaphylactic shock [None]
  - Infusion related reaction [None]
